FAERS Safety Report 12696894 (Version 1)
Quarter: 2016Q3

REPORT INFORMATION
  Report Type: Spontaneous
  Country: US (occurrence: US)
  Receive Date: 20160830
  Receipt Date: 20160830
  Transmission Date: 20161109
  Serious: No
  Sender: FDA-Public Use
  Company Number: US-TEVA-601377USA

PATIENT
  Age: 77 Year
  Sex: Female
  Weight: 55.39 kg

DRUGS (3)
  1. MORPHINE [Suspect]
     Active Substance: MORPHINE
     Indication: PAIN
     Route: 065
  2. LABETALOL [Suspect]
     Active Substance: LABETALOL\LABETALOL HYDROCHLORIDE
     Dosage: 200 MILLIGRAM DAILY;
     Route: 065
     Dates: start: 20151012
  3. PRAVASTATIN. [Concomitant]
     Active Substance: PRAVASTATIN

REACTIONS (1)
  - Pruritus generalised [Unknown]

NARRATIVE: CASE EVENT DATE: 20151013
